FAERS Safety Report 16342527 (Version 1)
Quarter: 2019Q2

REPORT INFORMATION
  Report Type: Spontaneous
  Country: US (occurrence: US)
  Receive Date: 20190416
  Receipt Date: 20190416
  Transmission Date: 20190711
  Serious: Yes (Other)
  Sender: FDA-Public Use
  Company Number: None

PATIENT
  Age: 80 Year
  Sex: Female

DRUGS (17)
  1. TORSEMIDE. [Concomitant]
     Active Substance: TORSEMIDE
  2. DIGOXIN. [Concomitant]
     Active Substance: DIGOXIN
  3. SILDONAFIL [Concomitant]
  4. OPSUMIT [Suspect]
     Active Substance: MACITENTAN
     Indication: PULMONARY HYPERTENSION
     Route: 048
     Dates: start: 201810
  5. NPH INSULIN [Concomitant]
     Active Substance: INSULIN BEEF
  6. LEVOTHROID [Concomitant]
     Active Substance: LEVOTHYROXINE SODIUM
  7. FOLIC ACID. [Concomitant]
     Active Substance: FOLIC ACID
  8. VITAMIN D3 [Concomitant]
     Active Substance: CHOLECALCIFEROL
  9. WARFARIN [Concomitant]
     Active Substance: WARFARIN
  10. LASIX [Concomitant]
     Active Substance: FUROSEMIDE
  11. FERROUS SULFATE. [Concomitant]
     Active Substance: FERROUS SULFATE
  12. CALCIUM CARBONATE. [Concomitant]
     Active Substance: CALCIUM CARBONATE
  13. CARBONATE [Concomitant]
  14. FOSAMAX [Concomitant]
     Active Substance: ALENDRONATE SODIUM
  15. ARAVA [Concomitant]
     Active Substance: LEFLUNOMIDE
  16. LIPITOR [Concomitant]
     Active Substance: ATORVASTATIN CALCIUM
  17. APLRONOLACTONE [Concomitant]

REACTIONS (2)
  - Animal bite [None]
  - Cellulitis [None]

NARRATIVE: CASE EVENT DATE: 20190414
